FAERS Safety Report 8133602-X (Version None)
Quarter: 2012Q1

REPORT INFORMATION
  Report Type: 
  Country: None (occurrence: None)
  Receive Date: 20120213
  Receipt Date: 20120203
  Transmission Date: 20120608
  Serious: Yes (Hospitalization, Other)
  Sender: FDA-Public Use
  Company Number: US-ABBOTT-12P-163-0901542-00

PATIENT
  Sex: Male
  Weight: 102.15 kg

DRUGS (8)
  1. ALBUTEROL SULFATE [Concomitant]
     Indication: ASTHMA
  2. LOVASTATIN [Concomitant]
     Indication: BLOOD CHOLESTEROL INCREASED
  3. HYDROCHLOROTHIAZIDE [Concomitant]
     Indication: HYPERTENSION
  4. PREGABALIN [Concomitant]
     Indication: FIBROMYALGIA
  5. HUMIRA [Suspect]
     Indication: RHEUMATOID ARTHRITIS
  6. METHOTREXATE [Suspect]
     Indication: RHEUMATOID ARTHRITIS
     Dosage: WEEKLY
  7. GABAPENTIN [Suspect]
     Indication: NEUROPATHY PERIPHERAL
     Dates: start: 20100101, end: 20110801
  8. LISINOPRIL [Concomitant]
     Indication: HYPERTENSION

REACTIONS (7)
  - DIZZINESS [None]
  - CONFUSIONAL STATE [None]
  - HEART VALVE INCOMPETENCE [None]
  - UNEVALUABLE EVENT [None]
  - CHEST PAIN [None]
  - HYPERTENSION [None]
  - HEART RATE IRREGULAR [None]
